FAERS Safety Report 24411058 (Version 4)
Quarter: 2025Q2

REPORT INFORMATION
  Report Type: Report from Study
  Country: CA (occurrence: CA)
  Receive Date: 20241008
  Receipt Date: 20250617
  Transmission Date: 20250716
  Serious: No
  Sender: PFIZER
  Company Number: CA-PFIZER INC-202400267986

PATIENT
  Age: 69 Year
  Sex: Female
  Weight: 76 kg

DRUGS (1)
  1. EPINEPHRINE [Suspect]
     Active Substance: EPINEPHRINE
     Indication: Anaphylactic shock

REACTIONS (2)
  - Device failure [Unknown]
  - Drug dose omission by device [Unknown]
